FAERS Safety Report 4438775-8 (Version None)
Quarter: 2004Q3

REPORT INFORMATION
  Report Type: 
  Country: None (occurrence: None)
  Receive Date: 20040901
  Receipt Date: 20040820
  Transmission Date: 20050211
  Serious: Yes (Hospitalization)
  Sender: FDA-Public Use
  Company Number: GB-JNJFOC-20040806951

PATIENT
  Sex: Female

DRUGS (8)
  1. REMICADE [Suspect]
     Indication: RHEUMATOID ARTHRITIS
     Route: 042
  2. AZATHIOPRINE [Concomitant]
  3. PREDNISOLONE [Concomitant]
  4. ARTHROTEC [Concomitant]
  5. ARTHROTEC [Concomitant]
  6. TRAMADOL HCL [Concomitant]
  7. THYROXINE [Concomitant]
  8. VENLAFAXINE HCL [Concomitant]

REACTIONS (2)
  - CHEST PAIN [None]
  - NECK PAIN [None]
